FAERS Safety Report 23203420 (Version 1)
Quarter: 2023Q4

REPORT INFORMATION
  Report Type: Spontaneous
  Country: US (occurrence: US)
  Receive Date: 20231120
  Receipt Date: 20231120
  Transmission Date: 20240110
  Serious: Yes (Other)
  Sender: FDA-Public Use
  Company Number: US-drreddys-LIT/USA/23/0183390

PATIENT
  Age: 25 Year
  Sex: Male

DRUGS (21)
  1. FINGOLIMOD [Suspect]
     Active Substance: FINGOLIMOD
     Indication: Progressive multiple sclerosis
     Dosage: MONTHLY
  2. CITALOPRAM [Suspect]
     Active Substance: CITALOPRAM HYDROBROMIDE
     Indication: Major depression
  3. CITALOPRAM [Suspect]
     Active Substance: CITALOPRAM HYDROBROMIDE
     Indication: Post-traumatic stress disorder
  4. PRAZOSIN [Concomitant]
     Active Substance: PRAZOSIN
     Indication: Product used for unknown indication
  5. CANNABIS SATIVA SUBSP. INDICA TOP [Concomitant]
     Active Substance: CANNABIS SATIVA SUBSP. INDICA TOP
     Indication: Multiple sclerosis
  6. TRAZODONE [Concomitant]
     Active Substance: TRAZODONE HYDROCHLORIDE
     Indication: Major depression
  7. QUETIAPINE [Concomitant]
     Active Substance: QUETIAPINE
     Indication: Major depression
  8. GLATIRAMER ACETATE [Concomitant]
     Active Substance: GLATIRAMER ACETATE
     Indication: Progressive multiple sclerosis
  9. NATALIZUMAB [Concomitant]
     Active Substance: NATALIZUMAB
     Indication: Progressive multiple sclerosis
  10. DIMETHYL FUMARATE [Concomitant]
     Active Substance: DIMETHYL FUMARATE
     Indication: Progressive multiple sclerosis
  11. unspecified steroid infusions [Concomitant]
     Indication: Progressive multiple sclerosis
  12. ALEMTUZUMAB [Concomitant]
     Active Substance: ALEMTUZUMAB
     Indication: Progressive multiple sclerosis
  13. METHIMAZOLE [Concomitant]
     Active Substance: METHIMAZOLE
     Indication: Graves^ disease
  14. ATENOLOL [Concomitant]
     Active Substance: ATENOLOL
     Indication: Graves^ disease
  15. QUETIAPINE [Concomitant]
     Active Substance: QUETIAPINE
     Indication: Major depression
  16. RISPERIDONE [Concomitant]
     Active Substance: RISPERIDONE
     Indication: Major depression
  17. OLANZAPINE [Concomitant]
     Active Substance: OLANZAPINE
     Indication: Major depression
  18. PALIPERIDONE [Concomitant]
     Active Substance: PALIPERIDONE
     Indication: Major depression
  19. LEVOTHYROXINE SODIUM [Concomitant]
     Active Substance: LEVOTHYROXINE SODIUM
     Indication: Graves^ disease
  20. MELATONIN [Concomitant]
     Active Substance: MELATONIN
     Indication: Major depression
  21. MIRTAZAPINE [Concomitant]
     Active Substance: MIRTAZAPINE
     Indication: Major depression

REACTIONS (2)
  - Drug ineffective [Unknown]
  - Sexual dysfunction [Unknown]
